FAERS Safety Report 5425649-9 (Version None)
Quarter: 2007Q3

REPORT INFORMATION
  Report Type: 
  Country: None (occurrence: None)
  Receive Date: 20070824
  Receipt Date: 20070815
  Transmission Date: 20080115
  Serious: Yes (Hospitalization, Other)
  Sender: FDA-Public Use
  Company Number: US-PFIZER INC-2007067984

PATIENT
  Sex: Male

DRUGS (2)
  1. BEXTRA [Suspect]
     Indication: ARTHRITIS
  2. BEXTRA [Suspect]
     Indication: ARTHROPATHY

REACTIONS (2)
  - BLINDNESS [None]
  - CEREBROVASCULAR ACCIDENT [None]
